FAERS Safety Report 14021555 (Version 5)
Quarter: 2018Q1

REPORT INFORMATION
  Report Type: Report from Study
  Country: US (occurrence: US)
  Receive Date: 20170928
  Receipt Date: 20180116
  Transmission Date: 20180508
  Serious: Yes (Hospitalization, Other)
  Sender: FDA-Public Use
  Company Number: US-TAKEDA-2017TUS019965

PATIENT
  Age: 22 Year
  Sex: Male

DRUGS (10)
  1. COLAZAL [Concomitant]
     Active Substance: BALSALAZIDE DISODIUM
     Dosage: UNK UNK, TID
     Route: 048
  2. BENTYL [Concomitant]
     Active Substance: DICYCLOMINE HYDROCHLORIDE
     Dosage: 20 MG, UNK
     Route: 048
  3. LOMOTIL [Concomitant]
     Active Substance: ATROPINE SULFATE\DIPHENOXYLATE HYDROCHLORIDE
     Dosage: UNK
     Route: 048
     Dates: start: 201701
  4. PREDNISONE. [Concomitant]
     Active Substance: PREDNISONE
     Dosage: 40 MG, QD
     Route: 048
  5. PREDNISONE. [Concomitant]
     Active Substance: PREDNISONE
     Dosage: UNK
  6. BENTYL [Concomitant]
     Active Substance: DICYCLOMINE HYDROCHLORIDE
     Dosage: UNK
  7. VEDOLIZUMAB [Suspect]
     Active Substance: VEDOLIZUMAB
     Indication: COLITIS ULCERATIVE
     Dosage: 300 MG, UNK
     Route: 042
     Dates: start: 20170831, end: 20171208
  8. IRON [Concomitant]
     Active Substance: IRON
     Dosage: UNK UNK, BID
     Route: 048
  9. ZYRTEC [Concomitant]
     Active Substance: CETIRIZINE HYDROCHLORIDE
     Dosage: UNK
  10. TYLENOL WITH CODEINE [Concomitant]
     Active Substance: ACETAMINOPHEN\CODEINE PHOSPHATE
     Dosage: UNK
     Route: 048

REACTIONS (16)
  - Abdominal distension [Recovered/Resolved]
  - Drug ineffective [Unknown]
  - Vein rupture [Unknown]
  - Discomfort [Recovered/Resolved]
  - Flatulence [Recovered/Resolved]
  - Rectal haemorrhage [Recovered/Resolved]
  - Muscle spasms [Unknown]
  - Mucous stools [Unknown]
  - Pain [Recovering/Resolving]
  - Pyrexia [Recovering/Resolving]
  - Middle insomnia [Unknown]
  - Faeces soft [Unknown]
  - Diarrhoea [Recovered/Resolved]
  - Haematochezia [Unknown]
  - Asthenia [Recovering/Resolving]
  - Frequent bowel movements [Unknown]

NARRATIVE: CASE EVENT DATE: 2017
